FAERS Safety Report 16362392 (Version 1)
Quarter: 2019Q2

REPORT INFORMATION
  Report Type: Spontaneous
  Country: US (occurrence: US)
  Receive Date: 20190419
  Receipt Date: 20190419
  Transmission Date: 20190711
  Serious: No
  Sender: FDA-Public Use
  Company Number: None

PATIENT
  Age: 81 Year
  Sex: Female
  Weight: 52.62 kg

DRUGS (21)
  1. LOSARTAN. [Concomitant]
     Active Substance: LOSARTAN
  2. SCALPICIN [Concomitant]
  3. NEVRAGEN [Concomitant]
  4. ADDERALL [Suspect]
     Active Substance: AMPHETAMINE ASPARTATE\AMPHETAMINE SULFATE\DEXTROAMPHETAMINE SACCHARATE\DEXTROAMPHETAMINE SULFATE
  5. ZANTAC [Concomitant]
     Active Substance: RANITIDINE HYDROCHLORIDE
  6. CLONAZEPAM. [Concomitant]
     Active Substance: CLONAZEPAM
  7. HEATING PAD [Concomitant]
  8. GARISCON [Concomitant]
  9. ZOHYDRO [Concomitant]
     Active Substance: HYDROCODONE BITARTRATE
  10. CENTRUM SILVER [Concomitant]
     Active Substance: MINERALS\VITAMINS
  11. NARCO [Concomitant]
  12. ASPIRIN 81 MG [Concomitant]
     Active Substance: ASPIRIN
  13. IBUPROFEN. [Concomitant]
     Active Substance: IBUPROFEN
  14. GASX [Concomitant]
  15. MIRALAX [Concomitant]
     Active Substance: POLYETHYLENE GLYCOL 3350
  16. A;PHA HIPORC ACID [Concomitant]
  17. EYE DROPS [Concomitant]
     Active Substance: UNSPECIFIED INGREDIENT
  18. ADDERALL [Concomitant]
     Active Substance: AMPHETAMINE ASPARTATE\AMPHETAMINE SULFATE\DEXTROAMPHETAMINE SACCHARATE\DEXTROAMPHETAMINE SULFATE
  19. CYMBALTA [Concomitant]
     Active Substance: DULOXETINE HYDROCHLORIDE
  20. FUROSEMIDE. [Concomitant]
     Active Substance: FUROSEMIDE
  21. CBD [Concomitant]
     Active Substance: CANNABIDIOL

REACTIONS (3)
  - Therapy cessation [None]
  - Hallucination [None]
  - Drug withdrawal syndrome [None]

NARRATIVE: CASE EVENT DATE: 20190208
